FAERS Safety Report 4399394-5 (Version None)
Quarter: 2004Q3

REPORT INFORMATION
  Report Type: 
  Country: None (occurrence: None)
  Receive Date: 20040712
  Receipt Date: 20040625
  Transmission Date: 20050211
  Serious: Yes (Hospitalization)
  Sender: FDA-Public Use
  Company Number: 196734

PATIENT
  Age: 38 Year
  Sex: Female

DRUGS (7)
  1. AVONEX [Suspect]
     Indication: MULTIPLE SCLEROSIS
     Dosage: 30 MCG QW; IM
     Route: 030
     Dates: start: 20040206, end: 20040301
  2. AVONEX [Suspect]
     Indication: MULTIPLE SCLEROSIS
     Dosage: 15 MCG QW; IM
     Route: 030
     Dates: start: 20040413, end: 20040503
  3. WELLBUTRIN [Concomitant]
  4. PLENDIL [Concomitant]
  5. NEXIUM [Concomitant]
  6. TRAZODONE HCL [Concomitant]
  7. NEURONTIN [Concomitant]

REACTIONS (3)
  - DYSPNOEA [None]
  - EYE OEDEMA [None]
  - MIGRAINE [None]
